FAERS Safety Report 5535136-5 (Version None)
Quarter: 2007Q4

REPORT INFORMATION
  Report Type: 
  Country: None (occurrence: None)
  Receive Date: 20071203
  Receipt Date: 20071119
  Transmission Date: 20080405
  Serious: Yes (Hospitalization, Disabling)
  Sender: FDA-Public Use
  Company Number: 02100-EUR-07-0165

PATIENT
  Age: 71 Year
  Sex: Male

DRUGS (9)
  1. CILOSTAZOL [Suspect]
     Indication: INTERMITTENT CLAUDICATION
     Dosage: 200 MG, ORAL
     Route: 048
     Dates: start: 20070417, end: 20070806
  2. FUROSEMIDE [Concomitant]
  3. ACETYLSALICYLIC ACID SRT [Concomitant]
  4. ISOSORBIDE DINITRATE [Concomitant]
  5. ALLOPURINOL [Concomitant]
  6. CAPTOPRIL [Concomitant]
  7. ATENOLOL [Concomitant]
  8. SOTALOL HYDROCHLORIDE [Concomitant]
  9. MOLSIDOMINE [Concomitant]

REACTIONS (1)
  - LEG AMPUTATION [None]
